FAERS Safety Report 4592288-1 (Version None)
Quarter: 2005Q1

REPORT INFORMATION
  Report Type: 
  Country: None (occurrence: None)
  Receive Date: 20050228
  Receipt Date: 20041118
  Transmission Date: 20050727
  Serious: Yes (Hospitalization)
  Sender: FDA-Public Use
  Company Number: US-BRISTOL-MYERS SQUIBB COMPANY-12769618

PATIENT
  Sex: Male

DRUGS (2)
  1. ABILIFY [Suspect]
  2. ARICEPT [Suspect]

REACTIONS (2)
  - OEDEMA PERIPHERAL [None]
  - PARKINSONISM [None]
